FAERS Safety Report 6843989-3 (Version None)
Quarter: 2010Q3

REPORT INFORMATION
  Report Type: 
  Country: None (occurrence: None)
  Receive Date: 20100715
  Receipt Date: 20100712
  Transmission Date: 20110219
  Serious: Yes (Other)
  Sender: FDA-Public Use
  Company Number: DE-SANOFI-AVENTIS-2010SA016540

PATIENT
  Age: 77 Year
  Sex: Male
  Weight: 99 kg

DRUGS (4)
  1. ARAVA [Suspect]
     Route: 048
     Dates: start: 20090817, end: 20091029
  2. ENALAPRIL MALEATE [Concomitant]
     Indication: ESSENTIAL HYPERTENSION
     Route: 048
     Dates: start: 20020801, end: 20091029
  3. ALLOPURINOL [Concomitant]
     Indication: GOUT
     Route: 048
     Dates: start: 20090401
  4. ACETYLSALICYLIC ACID [Concomitant]
     Indication: PRODUCT USED FOR UNKNOWN INDICATION
     Route: 048

REACTIONS (2)
  - PROTEINURIA [None]
  - RENAL FAILURE ACUTE [None]
